FAERS Safety Report 12616128 (Version 2)
Quarter: 2016Q3

REPORT INFORMATION
  Report Type: Spontaneous
  Country: US (occurrence: US)
  Receive Date: 20160802
  Receipt Date: 20160809
  Transmission Date: 20161109
  Serious: Yes (Disabling)
  Sender: FDA-Public Use
  Company Number: US-MYLANLABS-2016M1030640

PATIENT

DRUGS (5)
  1. LISINOPRIL. [Concomitant]
     Active Substance: LISINOPRIL
     Indication: HYPERTENSION
     Dosage: 12.5 MG, UNK
  2. FLUOXETINE [Concomitant]
     Active Substance: FLUOXETINE HYDROCHLORIDE
     Dosage: 20 MG, UNK
  3. BUPROPION. [Concomitant]
     Active Substance: BUPROPION
     Dosage: UNK
  4. ARMODAFINIL. [Suspect]
     Active Substance: ARMODAFINIL
     Indication: POOR QUALITY SLEEP
     Dosage: 150 MG, QD
     Route: 048
     Dates: start: 201606, end: 201607
  5. ARMODAFINIL. [Suspect]
     Active Substance: ARMODAFINIL
     Indication: ASTHENIA

REACTIONS (4)
  - Memory impairment [Recovered/Resolved]
  - Emotional poverty [Recovered/Resolved]
  - Drug ineffective [Recovered/Resolved]
  - Impaired work ability [Recovered/Resolved]

NARRATIVE: CASE EVENT DATE: 201606
